FAERS Safety Report 6048006-3 (Version None)
Quarter: 2009Q1

REPORT INFORMATION
  Report Type: 
  Country: None (occurrence: None)
  Receive Date: 20090123
  Receipt Date: 20090121
  Transmission Date: 20090719
  Serious: Yes (Death, Hospitalization)
  Sender: FDA-Public Use
  Company Number: PHEH2008US07957

PATIENT
  Sex: Male

DRUGS (1)
  1. EXJADE [Suspect]
     Indication: SERUM FERRITIN INCREASED
     Dosage: UNK, QD
     Route: 048
     Dates: start: 20080805, end: 20080828

REACTIONS (2)
  - ISCHAEMIC STROKE [None]
  - PNEUMONIA ASPIRATION [None]
